FAERS Safety Report 7266603-4 (Version None)
Quarter: 2011Q1

REPORT INFORMATION
  Report Type: 
  Country: None (occurrence: None)
  Receive Date: 20110131
  Receipt Date: 20110126
  Transmission Date: 20110831
  Serious: Yes (Life-Threatening, Hospitalization, Disabling)
  Sender: FDA-Public Use
  Company Number: FR-B.I. PHARMACEUTICALS,INC./RIDGEFIELD-2010-FF-01040FF

PATIENT
  Sex: Female
  Weight: 50 kg

DRUGS (3)
  1. MODOPAR [Concomitant]
     Indication: PARKINSON'S DISEASE
     Dosage: 375 MG
     Route: 048
     Dates: start: 20030103
  2. MODOPAR [Concomitant]
     Dosage: 250 MG
     Route: 048
     Dates: start: 20060101
  3. SIFROL LP [Suspect]
     Indication: PARKINSON'S DISEASE
     Dosage: 3.15 MG
     Route: 048
     Dates: start: 20100616

REACTIONS (11)
  - ULNA FRACTURE [None]
  - CLAVICLE FRACTURE [None]
  - SOMNOLENCE [None]
  - RIB FRACTURE [None]
  - CONTUSION [None]
  - HEAD INJURY [None]
  - PLEURAL EFFUSION [None]
  - ROAD TRAFFIC ACCIDENT [None]
  - OPEN FRACTURE [None]
  - TRAUMATIC HAEMATOMA [None]
  - DEVICE BREAKAGE [None]
